FAERS Safety Report 7664720-8 (Version None)
Quarter: 2011Q3

REPORT INFORMATION
  Report Type: 
  Country: None (occurrence: None)
  Receive Date: 20110806
  Receipt Date: 20110126
  Transmission Date: 20111222
  Serious: No
  Sender: FDA-Public Use
  Company Number: US-ABBOTT-11P-163-0700561-00

PATIENT
  Sex: Male
  Weight: 68.1 kg

DRUGS (6)
  1. PLAVIX [Concomitant]
     Indication: CAROTID ARTERY OCCLUSION
  2. CRESTOR [Concomitant]
     Indication: PRODUCT USED FOR UNKNOWN INDICATION
  3. NIASPAN [Suspect]
     Route: 048
     Dates: start: 20110125
  4. COREG [Concomitant]
     Indication: PRODUCT USED FOR UNKNOWN INDICATION
  5. NIASPAN [Suspect]
     Dosage: AT BEDTIME
     Route: 048
  6. NIASPAN [Suspect]
     Indication: DYSLIPIDAEMIA
     Dosage: AT BEDTIME
     Route: 048
     Dates: start: 20090101

REACTIONS (4)
  - CAROTID ARTERY OCCLUSION [None]
  - HYPERCHOLESTEROLAEMIA [None]
  - HEPATIC ENZYME INCREASED [None]
  - FLUSHING [None]
